FAERS Safety Report 16842985 (Version 1)
Quarter: 2019Q3

REPORT INFORMATION
  Report Type: Spontaneous
  Country: FR (occurrence: FR)
  Receive Date: 20190924
  Receipt Date: 20190924
  Transmission Date: 20191005
  Serious: Yes (Death)
  Sender: FDA-Public Use
  Company Number: FR-ASTRAZENECA-2019SF34969

PATIENT
  Age: 49 Year
  Sex: Female

DRUGS (1)
  1. LYNPARZA [Suspect]
     Active Substance: OLAPARIB
     Dosage: 50 MG
     Route: 048
     Dates: start: 201811, end: 2019

REACTIONS (1)
  - Death [Fatal]
